FAERS Safety Report 6551649-1 (Version None)
Quarter: 2010Q1

REPORT INFORMATION
  Report Type: 
  Country: None (occurrence: None)
  Receive Date: 20100126
  Receipt Date: 20100113
  Transmission Date: 20100710
  Serious: Yes (Other)
  Sender: FDA-Public Use
  Company Number: JP-PFIZER INC-2010005963

PATIENT
  Age: 72 Year
  Sex: Male
  Weight: 42 kg

DRUGS (1)
  1. SOLU-CORTEF [Suspect]
     Route: 042
     Dates: start: 20050822

REACTIONS (2)
  - ACUTE MYOCARDIAL INFARCTION [None]
  - ANAPHYLACTIC SHOCK [None]
